FAERS Safety Report 17412805 (Version 1)
Quarter: 2020Q1

REPORT INFORMATION
  Report Type: Spontaneous
  Country: US (occurrence: US)
  Receive Date: 20200212
  Receipt Date: 20200212
  Transmission Date: 20200409
  Serious: Yes (Hospitalization, Other)
  Sender: FDA-Public Use
  Company Number: None

PATIENT
  Age: 53 Year
  Sex: Female
  Weight: 93.15 kg

DRUGS (3)
  1. GABAPENTIN 300MG CAPSULES [Suspect]
     Active Substance: GABAPENTIN
     Indication: NEUROPATHY PERIPHERAL
     Route: 048
     Dates: start: 20190117, end: 20190128
  2. CYMBALTA [Concomitant]
     Active Substance: DULOXETINE HYDROCHLORIDE
  3. WOMEN^S MULT-VITAMIN [Concomitant]

REACTIONS (2)
  - Suicide attempt [None]
  - Depression [None]

NARRATIVE: CASE EVENT DATE: 20190926
